FAERS Safety Report 15612376 (Version 1)
Quarter: 2018Q4

REPORT INFORMATION
  Report Type: Spontaneous
  Country: CA (occurrence: CA)
  Receive Date: 20181113
  Receipt Date: 20181113
  Transmission Date: 20190205
  Serious: Yes (Death, Hospitalization, Other)
  Sender: FDA-Public Use
  Company Number: CA-MYLANLABS-2018M1083844

PATIENT
  Age: 75 Year
  Sex: Male

DRUGS (4)
  1. PREDNISONE. [Suspect]
     Active Substance: PREDNISONE
     Indication: IMMUNOSUPPRESSION
     Route: 065
  2. TACROLIMUS. [Suspect]
     Active Substance: TACROLIMUS
     Indication: IMMUNOSUPPRESSION
     Route: 065
  3. BCG [Suspect]
     Active Substance: BCG VACCINE
     Indication: TRANSITIONAL CELL CARCINOMA
     Dosage: SIX WEEKS INDUCTION COURSE WITHOUT MAINTENANCE DOSES
     Route: 050
  4. THYMOGLOBULIN [Suspect]
     Active Substance: LAPINE T-LYMPHOCYTE IMMUNE GLOBULIN
     Indication: IMMUNOSUPPRESSION
     Dosage: AT A DOSE OF 4-6 MG/KG
     Route: 065

REACTIONS (7)
  - Sepsis [Fatal]
  - Disseminated Bacillus Calmette-Guerin infection [Fatal]
  - Weight decreased [Unknown]
  - Mycobacterial infection [Fatal]
  - Prostatitis [Unknown]
  - Renal transplant failure [Unknown]
  - Renal failure [Unknown]

NARRATIVE: CASE EVENT DATE: 201611
